FAERS Safety Report 4871709-0 (Version None)
Quarter: 2006Q1

REPORT INFORMATION
  Report Type: 
  Country: None (occurrence: None)
  Receive Date: 20060104
  Receipt Date: 20051116
  Transmission Date: 20060701
  Serious: Yes (Life-Threatening, Hospitalization)
  Sender: FDA-Public Use
  Company Number: 2005SE06625

PATIENT
  Age: 21262 Day
  Sex: Female

DRUGS (3)
  1. ATACAND [Suspect]
     Indication: HYPERTENSION
     Route: 048
     Dates: start: 20020101, end: 20040802
  2. CENTYL WITH POTASSIUM CHLORIDE [Concomitant]
     Dates: end: 20031219
  3. CENTYL WITH POTASSIUM CHLORIDE [Concomitant]
     Dates: start: 20040225

REACTIONS (5)
  - APLASTIC ANAEMIA [None]
  - BLOOD LACTATE DEHYDROGENASE INCREASED [None]
  - BONE MARROW FAILURE [None]
  - DRUG INTOLERANCE [None]
  - NO THERAPEUTIC RESPONSE [None]
